FAERS Safety Report 17500132 (Version 2)
Quarter: 2020Q1

REPORT INFORMATION
  Report Type: Spontaneous
  Country: CA (occurrence: CA)
  Receive Date: 20200305
  Receipt Date: 20200316
  Transmission Date: 20200409
  Serious: Yes (Hospitalization)
  Sender: FDA-Public Use
  Company Number: CA-TEVA-2020-CA-1193534

PATIENT
  Age: 45 Year
  Sex: Male

DRUGS (2)
  1. METHADONE [Suspect]
     Active Substance: METHADONE HYDROCHLORIDE
     Indication: DRUG USE DISORDER
     Route: 048
  2. NALTREXONE [Suspect]
     Active Substance: NALTREXONE
     Route: 065

REACTIONS (3)
  - Accidental exposure to product [Unknown]
  - Drug withdrawal syndrome [Recovered/Resolved]
  - Prescription drug used without a prescription [Unknown]
